FAERS Safety Report 11597204 (Version 1)
Quarter: 2015Q4

REPORT INFORMATION
  Report Type: Spontaneous
  Country: US (occurrence: None)
  Receive Date: 20151005
  Receipt Date: 20151005
  Transmission Date: 20160304
  Serious: Yes (Disabling)
  Sender: FDA-Public Use
  Company Number: None

PATIENT
  Age: 45 Year
  Sex: Female
  Weight: 60.78 kg

DRUGS (13)
  1. ELETONE [Concomitant]
  2. METOPROLOL [Concomitant]
     Active Substance: METOPROLOL
  3. MULTIVITAMIN [Concomitant]
     Active Substance: VITAMINS
  4. PROBIOTICS [Concomitant]
     Active Substance: PROBIOTICS NOS
  5. POTOPIC [Concomitant]
  6. ZINC [Concomitant]
     Active Substance: ZINC\ZINC CHLORIDE
  7. TART CHERRY JUICE CONCENTRATE [Concomitant]
  8. FISH OIL [Concomitant]
     Active Substance: FISH OIL
  9. CPAP MACHINE [Concomitant]
  10. VITAMIN C [Concomitant]
     Active Substance: ASCORBIC ACID
  11. LEVAQUIN [Suspect]
     Active Substance: LEVOFLOXACIN
     Indication: PREOPERATIVE CARE
     Dosage: 5 PILLS
     Route: 048
     Dates: start: 20100427, end: 20100501
  12. MAGNESIUM [Concomitant]
     Active Substance: MAGNESIUM
  13. VITAMIN D [Concomitant]
     Active Substance: CHOLECALCIFEROL

REACTIONS (19)
  - Neuropathy peripheral [None]
  - Dry throat [None]
  - Dysphagia [None]
  - Insomnia [None]
  - Anosmia [None]
  - Gastrointestinal disorder [None]
  - Drug hypersensitivity [None]
  - Rash [None]
  - Food allergy [None]
  - Dry eye [None]
  - Sleep apnoea syndrome [None]
  - Intervertebral disc protrusion [None]
  - Dry mouth [None]
  - Myalgia [None]
  - Migraine [None]
  - Autoimmune disorder [None]
  - Tendon pain [None]
  - Ageusia [None]
  - Weight decreased [None]

NARRATIVE: CASE EVENT DATE: 20100427
